FAERS Safety Report 8818988 (Version 1)
Quarter: 2012Q4

REPORT INFORMATION
  Report Type: Spontaneous
  Country: GB (occurrence: None)
  Receive Date: 20121003
  Receipt Date: 20121003
  Transmission Date: 20130627
  Serious: Yes (Hospitalization)
  Sender: FDA-Public Use
  Company Number: 2012MA011549

PATIENT
  Age: 29 Year
  Sex: Female
  Weight: 82 kg

DRUGS (4)
  1. ACETAMINOPHEN (+) CODEINE [Suspect]
     Route: 048
  2. ALCOHOL [Concomitant]
     Route: 048
  3. TRADOLAN [Concomitant]
  4. CITALOPRAM [Concomitant]

REACTIONS (9)
  - Intentional overdose [None]
  - Hepatotoxicity [None]
  - Malaise [None]
  - Vomiting [None]
  - Flushing [None]
  - Urticaria [None]
  - Dyspnoea [None]
  - Wheezing [None]
  - Abdominal pain upper [None]
